FAERS Safety Report 5252902-4 (Version None)
Quarter: 2007Q1

REPORT INFORMATION
  Report Type: 
  Country: None (occurrence: None)
  Receive Date: 20070301
  Receipt Date: 20070215
  Transmission Date: 20070707
  Serious: Yes (Hospitalization)
  Sender: FDA-Public Use
  Company Number: GB-ELI_LILLY_AND_COMPANY-GB200612000298

PATIENT
  Age: 24 Year
  Sex: Female

DRUGS (5)
  1. ZYPREXA [Suspect]
     Indication: SCHIZOPHRENIA
     Dosage: 20 MG, UNK
     Dates: start: 20041201, end: 20060101
  2. ZYPREXA [Suspect]
     Dosage: 10 MG, UNK
     Dates: start: 20060101, end: 20061203
  3. ZYPREXA [Suspect]
     Dosage: 5 MG, UNK
     Dates: start: 20060101, end: 20060101
  4. ZYPREXA [Suspect]
     Dosage: 20 MG, UNK
     Dates: start: 20061204, end: 20061201
  5. CANNABIS [Concomitant]

REACTIONS (5)
  - DIET REFUSAL [None]
  - DRUG EXPOSURE DURING PREGNANCY [None]
  - PSYCHOTIC DISORDER [None]
  - SEDATION [None]
  - VOMITING [None]
